FAERS Safety Report 9259152 (Version 1)
Quarter: 2013Q2

REPORT INFORMATION
  Report Type: Spontaneous
  Country: US (occurrence: US)
  Receive Date: 20130426
  Receipt Date: 20130426
  Transmission Date: 20140414
  Serious: Yes (Other)
  Sender: FDA-Public Use
  Company Number: CHPA2013US007232

PATIENT
  Age: 31 Year
  Sex: Female

DRUGS (2)
  1. PANTOPRAZOLE [Suspect]
     Dosage: UNK, UNK
     Route: 065
  2. PARACETAMOL [Suspect]
     Dosage: PRN
     Route: 065

REACTIONS (5)
  - Iron deficiency anaemia [Recovering/Resolving]
  - Occult blood positive [Unknown]
  - Melaena [Unknown]
  - Abdominal tenderness [Unknown]
  - Abdominal pain [Unknown]
